FAERS Safety Report 21850212 (Version 10)
Quarter: 2025Q2

REPORT INFORMATION
  Report Type: Report from Study
  Country: CO (occurrence: CO)
  Receive Date: 20230111
  Receipt Date: 20250523
  Transmission Date: 20250717
  Serious: Yes (Other)
  Sender: TAKEDA
  Company Number: CO-TAKEDA-CO202026817

PATIENT
  Age: 19 Year
  Sex: Female
  Weight: 53 kg

DRUGS (8)
  1. ICATIBANT [Suspect]
     Active Substance: ICATIBANT ACETATE
     Indication: Hereditary angioedema
  2. ICATIBANT [Suspect]
     Active Substance: ICATIBANT ACETATE
     Dosage: 1 DOSAGE FORM, Q6HR
  3. ICATIBANT [Suspect]
     Active Substance: ICATIBANT ACETATE
     Dosage: UNK UNK, Q6HR
  4. ICATIBANT [Suspect]
     Active Substance: ICATIBANT ACETATE
     Dates: start: 20200628, end: 20200629
  5. ICATIBANT [Suspect]
     Active Substance: ICATIBANT ACETATE
     Dates: start: 20200926, end: 20200927
  6. ICATIBANT [Suspect]
     Active Substance: ICATIBANT ACETATE
  7. ICATIBANT [Suspect]
     Active Substance: ICATIBANT ACETATE
  8. ICATIBANT [Suspect]
     Active Substance: ICATIBANT ACETATE
     Dosage: UNK, Q6HR

REACTIONS (15)
  - Drug dependence [Unknown]
  - HIV infection [Unknown]
  - Syphilis [Unknown]
  - Pregnancy [Recovered/Resolved]
  - Application site pain [Unknown]
  - Product use issue [Unknown]
  - Exposure via breast milk [Unknown]
  - Influenza [Not Recovered/Not Resolved]
  - Weight increased [Unknown]
  - Body height increased [Unknown]
  - Pain [Recovered/Resolved]
  - Inflammation [Recovered/Resolved]
  - Toothache [Recovered/Resolved]
  - Accident [Recovered/Resolved]
  - Thermal burn [Recovered/Resolved]

NARRATIVE: CASE EVENT DATE: 20211228
